FAERS Safety Report 12724953 (Version 1)
Quarter: 2016Q3

REPORT INFORMATION
  Report Type: Report from Study
  Country: KR (occurrence: KR)
  Receive Date: 20160908
  Receipt Date: 20160908
  Transmission Date: 20161109
  Serious: Yes (Hospitalization)
  Sender: FDA-Public Use
  Company Number: KR-CELLTRION INC.-2016KR006872

PATIENT

DRUGS (11)
  1. REMSIMA [Suspect]
     Active Substance: INFLIXIMAB
     Indication: CROHN^S DISEASE
     Dosage: UNK MG, UNK
     Route: 042
     Dates: start: 20160202, end: 20160202
  2. LIPIDEM [Concomitant]
     Indication: PROPHYLAXIS
     Dosage: 1 UNK, DAILY
     Route: 042
     Dates: start: 20160402, end: 20160410
  3. PENIRAMIN [Concomitant]
     Indication: PROPHYLAXIS
     Dosage: 4 UNK, DAILY
     Route: 042
     Dates: start: 20160202, end: 20160202
  4. REMSIMA [Suspect]
     Active Substance: INFLIXIMAB
     Dosage: 270 MG, UNK
     Route: 042
     Dates: start: 20160507, end: 20160507
  5. YUHANZID [Concomitant]
     Active Substance: ISONIAZID
     Indication: ANTIBIOTIC PROPHYLAXIS
     Dosage: 300 UNK, DAILY
     Route: 048
     Dates: start: 20160202, end: 20160202
  6. WINUF PERI [Concomitant]
     Indication: PROPHYLAXIS
     Dosage: 1 UNK, DAILY
     Route: 042
     Dates: start: 20160330, end: 20160401
  7. ASACOL [Concomitant]
     Active Substance: MESALAMINE
     Indication: CROHN^S DISEASE
     Dosage: 1200 UNK, TID
     Route: 048
     Dates: start: 201405
  8. RIFODEX [Concomitant]
     Indication: ANTIBIOTIC PROPHYLAXIS
     Dosage: 450 UNK, DAILY
     Route: 048
     Dates: start: 20160202, end: 20160202
  9. NEXIUM [Concomitant]
     Active Substance: ESOMEPRAZOLE MAGNESIUM
     Indication: PROPHYLAXIS
     Dosage: 1 UNK, DAILY
     Route: 042
     Dates: start: 20160330, end: 20160412
  10. NEXIUM [Concomitant]
     Active Substance: ESOMEPRAZOLE MAGNESIUM
     Indication: PROPHYLAXIS
     Dosage: 1 UNK, DAILY
     Route: 042
     Dates: start: 20160202, end: 20160204
  11. PROAMIN [Concomitant]
     Indication: PROPHYLAXIS
     Dosage: 200 UNK, DAILY
     Route: 042
     Dates: start: 20160402, end: 20160411

REACTIONS (2)
  - Perforation [Recovered/Resolved]
  - Crohn^s disease [Recovered/Resolved]

NARRATIVE: CASE EVENT DATE: 20160329
